FAERS Safety Report 10992350 (Version 8)
Quarter: 2018Q1

REPORT INFORMATION
  Report Type: Report from Study
  Country: BE (occurrence: BE)
  Receive Date: 20150406
  Receipt Date: 20180301
  Transmission Date: 20180508
  Serious: Yes (Hospitalization)
  Sender: FDA-Public Use
  Company Number: PHHO2015BE005018

PATIENT
  Age: 43 Year
  Sex: Female
  Weight: 66 kg

DRUGS (7)
  1. AIN457 [Suspect]
     Active Substance: SECUKINUMAB
     Indication: ANKYLOSING SPONDYLITIS
     Dosage: 300 MG, UNK
     Route: 058
     Dates: start: 20140522, end: 20150305
  2. REDOMEX [Concomitant]
     Active Substance: AMITRIPTYLINE HYDROCHLORIDE
     Indication: MIGRAINE
     Dosage: 25 MG, QID
     Route: 048
     Dates: start: 20140110
  3. OXYBUTYNIN. [Concomitant]
     Active Substance: OXYBUTYNIN CHLORIDE
     Indication: PSYCHOMOTOR HYPERACTIVITY
     Dosage: 2.5 MG, TID
     Route: 048
     Dates: start: 20141021
  4. SIPRALEXA [Concomitant]
     Active Substance: ESCITALOPRAM OXALATE
     Indication: DEPRESSION
     Dosage: 20 MG, QID
     Route: 048
     Dates: start: 201401
  5. PLACEBO [Suspect]
     Active Substance: UNSPECIFIED INGREDIENT
     Indication: ANKYLOSING SPONDYLITIS
     Dosage: UNK
     Route: 058
  6. DICLOFENAC [Concomitant]
     Active Substance: DICLOFENAC
     Indication: ANKYLOSING SPONDYLITIS
     Dosage: 100 MG, BID
     Route: 048
     Dates: start: 20130610
  7. DAFALGAN CODEINE [Concomitant]
     Active Substance: ACETAMINOPHEN\CODEINE PHOSPHATE
     Indication: MIGRAINE
     Dosage: 500MG+300MG 3 X DAY
     Route: 065
     Dates: start: 20140731

REACTIONS (2)
  - Escherichia urinary tract infection [Recovered/Resolved]
  - Pyelonephritis acute [Recovered/Resolved]

NARRATIVE: CASE EVENT DATE: 20150318
